FAERS Safety Report 13631065 (Version 1)
Quarter: 2017Q2

REPORT INFORMATION
  Report Type: Spontaneous
  Country: US (occurrence: US)
  Receive Date: 20170531
  Receipt Date: 20170531
  Transmission Date: 20170830
  Serious: No
  Sender: FDA-Public Use
  Company Number: US-ASTELLAS-1349031

PATIENT
  Sex: Female

DRUGS (12)
  1. AVASTIN [Concomitant]
     Active Substance: BEVACIZUMAB
     Route: 065
  2. LEVOTHYROXINE. [Concomitant]
     Active Substance: LEVOTHYROXINE
  3. FOLIC ACID. [Concomitant]
     Active Substance: FOLIC ACID
  4. ONDANSETRON [Concomitant]
     Active Substance: ONDANSETRON
  5. TUMS [Concomitant]
     Active Substance: CALCIUM CARBONATE
  6. ZYRTEC [Concomitant]
     Active Substance: CETIRIZINE HYDROCHLORIDE
  7. MELATONIN [Concomitant]
     Active Substance: MELATONIN
  8. FUROSEMIDE. [Concomitant]
     Active Substance: FUROSEMIDE
  9. SYNTHROID [Concomitant]
     Active Substance: LEVOTHYROXINE SODIUM
  10. TARCEVA [Suspect]
     Active Substance: ERLOTINIB HYDROCHLORIDE
     Indication: PRODUCT USED FOR UNKNOWN INDICATION
     Route: 048
     Dates: start: 20140203
  11. DIAZEPAM. [Concomitant]
     Active Substance: DIAZEPAM
     Route: 065
  12. TYLENOL [Concomitant]
     Active Substance: ACETAMINOPHEN

REACTIONS (2)
  - Diarrhoea [Unknown]
  - Pruritus [Unknown]
